FAERS Safety Report 14826743 (Version 1)
Quarter: 2018Q2

REPORT INFORMATION
  Report Type: Spontaneous
  Country: US (occurrence: US)
  Receive Date: 20180430
  Receipt Date: 20180430
  Transmission Date: 20180711
  Serious: Yes (Life-Threatening, Other)
  Sender: FDA-Public Use
  Company Number: US-ALEXION PHARMACEUTICALS INC-A201804982

PATIENT
  Sex: Female
  Weight: 53.52 kg

DRUGS (2)
  1. KANUMA [Suspect]
     Active Substance: SEBELIPASE ALFA
     Indication: LYSOSOMAL ACID LIPASE DEFICIENCY
     Dosage: 1 MG/KG, Q2W
     Route: 065
     Dates: start: 201601
  2. KANUMA [Suspect]
     Active Substance: SEBELIPASE ALFA
     Dosage: 3 MG/KG, QW
     Route: 065
     Dates: start: 201609

REACTIONS (2)
  - Liver function test increased [Recovered/Resolved]
  - Arrhythmia [Recovered/Resolved]
